FAERS Safety Report 7067842-8 (Version None)
Quarter: 2010Q4

REPORT INFORMATION
  Report Type: 
  Country: None (occurrence: None)
  Receive Date: 20101028
  Receipt Date: 20101025
  Transmission Date: 20110411
  Serious: Yes (Disabling)
  Sender: FDA-Public Use
  Company Number: GB-PFIZER INC-2010117744

PATIENT
  Age: 79 Year
  Sex: Male
  Weight: 77.5 kg

DRUGS (6)
  1. GABAPENTIN [Suspect]
     Indication: POST HERPETIC NEURALGIA
     Dosage: 300 MG, UNK
     Dates: start: 20080820, end: 20100616
  2. GABAPENTIN [Suspect]
     Indication: HERPES ZOSTER
  3. AXSAIN [Concomitant]
     Indication: POST HERPETIC NEURALGIA
  4. AMLODIPINE [Concomitant]
     Indication: HYPERTENSION
     Dosage: 5 MG, UNK
     Route: 048
  5. BISOPROLOL [Concomitant]
     Indication: CARDIAC DISORDER
     Dosage: 1.25 MG, UNK
     Route: 048
     Dates: start: 20090101
  6. TENORETIC 100 [Concomitant]
     Indication: INSOMNIA

REACTIONS (16)
  - ADVERSE DRUG REACTION [None]
  - APATHY [None]
  - ASTHENIA [None]
  - DECREASED INTEREST [None]
  - DEPRESSION [None]
  - DISCOMFORT [None]
  - DISTURBANCE IN ATTENTION [None]
  - DRUG WITHDRAWAL SYNDROME [None]
  - FATIGUE [None]
  - HYPOAESTHESIA [None]
  - MALAISE [None]
  - MUSCLE TWITCHING [None]
  - NIGHT SWEATS [None]
  - PAIN IN EXTREMITY [None]
  - PARAESTHESIA [None]
  - SLEEP DISORDER [None]
